FAERS Safety Report 8950723 (Version 1)
Quarter: 2012Q4

REPORT INFORMATION
  Report Type: Spontaneous
  Country: GB (occurrence: None)
  Receive Date: 20121128
  Receipt Date: 20121128
  Transmission Date: 20130627
  Serious: Yes (Hospitalization)
  Sender: FDA-Public Use
  Company Number: 2012SUN00267

PATIENT
  Age: 64 Year
  Sex: Female
  Weight: 66 kg

DRUGS (3)
  1. CARBOPLATIN [Suspect]
     Indication: OVARIAN CANCER
     Dosage: day 1, 8, 15 q28
     Route: 042
     Dates: start: 20120921
  2. BEVACIZUMAB [Suspect]
     Indication: OVARIAN CANCER
     Dosage: 1/21Days
     Route: 042
     Dates: start: 20120921, end: 20121105
  3. PACLITAXEL (PACLITAXEL) [Suspect]
     Indication: OVARIAN CANCER
     Dosage: day 1, 8, 15 q28
     Route: 042
     Dates: start: 20120921

REACTIONS (4)
  - Neutropenic sepsis [None]
  - Syncope [None]
  - Hypertension [None]
  - Malignant neoplasm progression [None]
